FAERS Safety Report 25056353 (Version 2)
Quarter: 2025Q1

REPORT INFORMATION
  Report Type: Report from Study
  Country: ES (occurrence: ES)
  Receive Date: 20250310
  Receipt Date: 20250319
  Transmission Date: 20250408
  Serious: Yes (Hospitalization)
  Sender: ABBVIE
  Company Number: ES-ABBVIE-6168776

PATIENT
  Age: 82 Year
  Sex: Female
  Weight: 63 kg

DRUGS (2)
  1. CARBIDOPA\LEVODOPA [Suspect]
     Active Substance: CARBIDOPA\LEVODOPA
     Indication: Parkinson^s disease
     Route: 050
     Dates: start: 20250228
  2. CARBIDOPA\LEVODOPA [Suspect]
     Active Substance: CARBIDOPA\LEVODOPA

REACTIONS (2)
  - Procedural pain [Not Recovered/Not Resolved]
  - Flatulence [Unknown]

NARRATIVE: CASE EVENT DATE: 20250101
